FAERS Safety Report 11071951 (Version 1)
Quarter: 2015Q2

REPORT INFORMATION
  Report Type: Report from Study
  Country: US (occurrence: US)
  Receive Date: 20150428
  Receipt Date: 20150428
  Transmission Date: 20150821
  Serious: No
  Sender: FDA-Public Use
  Company Number: US-AMGEN-USASL2015039884

PATIENT
  Age: 45 Year
  Sex: Female

DRUGS (1)
  1. ENBREL [Suspect]
     Active Substance: ETANERCEPT
     Indication: ARTHRITIS
     Dosage: UNK
     Route: 065
     Dates: start: 20150331, end: 20150414

REACTIONS (7)
  - Multiple allergies [Unknown]
  - Injection site swelling [Recovered/Resolved]
  - Injection site erythema [Recovered/Resolved]
  - Injection site urticaria [Recovered/Resolved]
  - Sinusitis [Unknown]
  - Sinus headache [Unknown]
  - Nasopharyngitis [Unknown]

NARRATIVE: CASE EVENT DATE: 201504
